FAERS Safety Report 21180910 (Version 1)
Quarter: 2022Q3

REPORT INFORMATION
  Report Type: Report from Study
  Country: CA (occurrence: CA)
  Receive Date: 20220806
  Receipt Date: 20220806
  Transmission Date: 20221027
  Serious: Yes (Other)
  Sender: FDA-Public Use
  Company Number: CA-TEVA-2022-CA-2061115

PATIENT
  Sex: Female

DRUGS (2)
  1. OCTREOTIDE [Suspect]
     Active Substance: OCTREOTIDE
     Indication: Carcinoid tumour
     Route: 030
     Dates: start: 20220601
  2. Sando LAR [Concomitant]
     Indication: Product used for unknown indication
     Route: 065

REACTIONS (3)
  - Cardiac failure congestive [Unknown]
  - Asthma [Unknown]
  - Chronic obstructive pulmonary disease [Unknown]
